FAERS Safety Report 13736003 (Version 2)
Quarter: 2017Q3

REPORT INFORMATION
  Report Type: Report from Study
  Country: US (occurrence: BR)
  Receive Date: 20170710
  Receipt Date: 20170901
  Transmission Date: 20171127
  Serious: Yes (Death, Hospitalization)
  Sender: FDA-Public Use
  Company Number: US-SUNOVION-2017SUN002897

PATIENT
  Sex: Male

DRUGS (6)
  1. FORASEQ [Suspect]
     Active Substance: BUDESONIDE\FORMOTEROL FUMARATE
     Indication: BRONCHITIS
     Dosage: UNK
     Route: 065
  2. GLYCOPYRROLATE. [Suspect]
     Active Substance: GLYCOPYRROLATE
     Indication: BRONCHITIS
     Dosage: UNK
     Route: 065
     Dates: start: 201601
  3. GLYCOPYRROLATE. [Suspect]
     Active Substance: GLYCOPYRROLATE
     Indication: TEMPERATURE REGULATION DISORDER
  4. GLYCOPYRROLATE. [Suspect]
     Active Substance: GLYCOPYRROLATE
     Indication: LUNG NEOPLASM MALIGNANT
  5. GLYCOPYRROLATE. [Suspect]
     Active Substance: GLYCOPYRROLATE
     Indication: EMPHYSEMA
  6. GLYCOPYRROLATE. [Suspect]
     Active Substance: GLYCOPYRROLATE
     Indication: LUNG DISORDER

REACTIONS (5)
  - Neoplasm [Unknown]
  - Chronic obstructive pulmonary disease [Unknown]
  - Product use in unapproved indication [Unknown]
  - Transfusion reaction [Fatal]
  - Weight decreased [Unknown]
